FAERS Safety Report 12138135 (Version 1)
Quarter: 2016Q1

REPORT INFORMATION
  Report Type: Spontaneous
  Country: ES (occurrence: ES)
  Receive Date: 20160302
  Receipt Date: 20160302
  Transmission Date: 20160526
  Serious: Yes (Other)
  Sender: FDA-Public Use
  Company Number: ES-009507513-1602ESP013102

PATIENT
  Age: 62 Year
  Sex: Female

DRUGS (2)
  1. LIDOCAINE. [Suspect]
     Active Substance: LIDOCAINE
     Indication: INTERVERTEBRAL DISC PROTRUSION
     Route: 050
     Dates: start: 20160112, end: 20160112
  2. CELESTONE CRONODOSE [Suspect]
     Active Substance: BETAMETHASONE
     Indication: INTERVERTEBRAL DISC PROTRUSION
     Route: 050
     Dates: start: 20160112, end: 20160112

REACTIONS (3)
  - Angioedema [Recovered/Resolved]
  - Nervousness [Recovered/Resolved]
  - Hyperhidrosis [Recovered/Resolved]

NARRATIVE: CASE EVENT DATE: 20160113
